FAERS Safety Report 4469201-0 (Version None)
Quarter: 2004Q4

REPORT INFORMATION
  Report Type: 
  Country: None (occurrence: None)
  Receive Date: 20041005
  Receipt Date: 20040920
  Transmission Date: 20050328
  Serious: Yes (Death)
  Sender: FDA-Public Use
  Company Number: 2004SE05127

PATIENT
  Age: 81 Year
  Sex: Female
  Weight: 65 kg

DRUGS (8)
  1. NAROPIN [Suspect]
     Indication: NERVE BLOCK
     Dosage: 225 MG ONCE IV
     Route: 042
     Dates: start: 20040616, end: 20040616
  2. FUROSEMIDE [Concomitant]
  3. ATENOLOL [Concomitant]
  4. ACETYLSALICYLIC ACID [Concomitant]
  5. DIGOXIN [Concomitant]
  6. LANZOPRAZOLE [Concomitant]
  7. DIAZEPAM [Concomitant]
  8. AMILORIDE [Concomitant]

REACTIONS (7)
  - CARDIAC FAILURE CONGESTIVE [None]
  - CIRCULATORY COLLAPSE [None]
  - CONVULSION [None]
  - DILATATION VENTRICULAR [None]
  - PULMONARY EMBOLISM [None]
  - TRICUSPID VALVE INCOMPETENCE [None]
  - VENTRICULAR TACHYCARDIA [None]
